FAERS Safety Report 24441443 (Version 2)
Quarter: 2024Q4

REPORT INFORMATION
  Report Type: Spontaneous
  Country: FR (occurrence: FR)
  Receive Date: 20241016
  Receipt Date: 20241017
  Transmission Date: 20250115
  Serious: No
  Sender: ROCHE
  Company Number: FR-ROCHE-3497001

PATIENT
  Age: 4 Year
  Sex: Male

DRUGS (4)
  1. EMICIZUMAB [Interacting]
     Active Substance: EMICIZUMAB
     Indication: Factor VIII deficiency
     Dosage: CONTINUED AT 1.5 MG/KG/WEEK.
     Route: 065
  2. ASPARAGINASE [Interacting]
     Active Substance: ASPARAGINASE
     Indication: Acute lymphocytic leukaemia
     Dosage: EVERY 3 WEEKS, 5 TIMES IN ALL (2500 UI/M2 ONCE BEFORE INDUCTION)
     Route: 065
  3. PREDNISOLONE [Concomitant]
     Active Substance: PREDNISOLONE
     Indication: Chemotherapy
     Route: 065
  4. DEXAMETHASONE [Concomitant]
     Active Substance: DEXAMETHASONE
     Indication: Chemotherapy
     Route: 065

REACTIONS (1)
  - Drug interaction [Unknown]
